FAERS Safety Report 17687318 (Version 3)
Quarter: 2020Q4

REPORT INFORMATION
  Report Type: Other
  Country: DE (occurrence: DE)
  Receive Date: 20200421
  Receipt Date: 20201124
  Transmission Date: 20210113
  Serious: Yes (Other)
  Sender: FDA-Public Use
  Company Number: DE-ROCHE-2582591

PATIENT
  Age: 30 Year
  Sex: Female

DRUGS (3)
  1. GABAPENTIN. [Concomitant]
     Active Substance: GABAPENTIN
  2. OCREVUS [Suspect]
     Active Substance: OCRELIZUMAB
     Indication: RELAPSING MULTIPLE SCLEROSIS
     Dosage: THEN 600 MG EVERY 6 MONTHS
     Route: 042
     Dates: start: 20190515, end: 20190530
  3. PROPICUM [Concomitant]
     Active Substance: SODIUM PROPIONATE

REACTIONS (22)
  - Monoparesis [Recovering/Resolving]
  - Speech disorder [Not Recovered/Not Resolved]
  - Fatigue [Not Recovered/Not Resolved]
  - Dry throat [Recovering/Resolving]
  - Pharyngeal polyp [Not Recovered/Not Resolved]
  - Multiple sclerosis relapse [Recovered/Resolved]
  - Muscle disorder [Not Recovered/Not Resolved]
  - Hypercapnia [Recovering/Resolving]
  - Quadriparesis [Not Recovered/Not Resolved]
  - Intracranial pressure increased [Recovering/Resolving]
  - Alopecia [Recovered/Resolved]
  - Pyelonephritis [Recovered/Resolved]
  - Onychomycosis [Recovering/Resolving]
  - B-lymphocyte count decreased [Recovering/Resolving]
  - Cognitive disorder [Not Recovered/Not Resolved]
  - Dysarthria [Recovering/Resolving]
  - Dyspnoea [Recovering/Resolving]
  - Platypnoea [Recovering/Resolving]
  - Gait disturbance [Not Recovered/Not Resolved]
  - Tinnitus [Recovering/Resolving]
  - Migraine [Recovering/Resolving]
  - Myopathy [Unknown]

NARRATIVE: CASE EVENT DATE: 201906
